FAERS Safety Report 16369693 (Version 1)
Quarter: 2019Q2

REPORT INFORMATION
  Report Type: Spontaneous
  Country: FR (occurrence: FR)
  Receive Date: 20190530
  Receipt Date: 20190530
  Transmission Date: 20190711
  Serious: Yes (Hospitalization, Other)
  Sender: FDA-Public Use
  Company Number: FR-AUROBINDO-AUR-APL-2019-029904

PATIENT

DRUGS (6)
  1. SPECIAFOLDINE [Concomitant]
     Active Substance: FOLIC ACID
     Indication: ANAEMIA
     Dosage: 2 COMPRIM?S DE 5MG, 1 FOIS PAR SEMAINE LE JEUDI MATIN
     Route: 048
  2. DAIVOBET [Concomitant]
     Active Substance: BETAMETHASONE DIPROPIONATE\CALCIPOTRIENE
     Indication: PSORIASIS
     Dosage: 4 DOSAGE FORM, 1 MONTH, 4 TUBES PAR MOIS
     Route: 003
  3. BETNEVAL [Concomitant]
     Active Substance: BETAMETHASONE VALERATE
     Indication: PSORIASIS
     Dosage: (1)UNK, ONCE A DAY, 1 APPLICATION PAR JOUR LE SOIR
     Route: 003
  4. AMOXICILLIN. [Suspect]
     Active Substance: AMOXICILLIN
     Indication: TONSILLITIS
     Dosage: UNK
     Route: 048
     Dates: start: 20190416
  5. ATARAX [Concomitant]
     Active Substance: HYDROXYZINE HYDROCHLORIDE
     Indication: POST-TRAUMATIC STRESS DISORDER
     Dosage: 25 MILLIGRAM, ONCE A DAY, 25MG AU COUCHER
     Route: 065
  6. IMETH [Suspect]
     Active Substance: METHOTREXATE SODIUM
     Indication: PSORIASIS
     Dosage: 2 COMPRIM?S DE 10MG, UNE FOIS PAR SEMAINE LE MARDI
     Route: 048
     Dates: start: 20181215, end: 20190420

REACTIONS (2)
  - Pancytopenia [Recovering/Resolving]
  - Stomatitis [Recovering/Resolving]

NARRATIVE: CASE EVENT DATE: 20190416
